FAERS Safety Report 6082786-6 (Version None)
Quarter: 2009Q1

REPORT INFORMATION
  Report Type: 
  Country: None (occurrence: None)
  Receive Date: 20090218
  Receipt Date: 20090212
  Transmission Date: 20090719
  Serious: Yes (Death, Hospitalization)
  Sender: FDA-Public Use
  Company Number: JP-EISAI MEDICAL RESEARCH-E2020-03711-CLI-JP

PATIENT
  Sex: Female
  Weight: 50 kg

DRUGS (5)
  1. DONEPEZIL HCL [Suspect]
     Indication: DEMENTIA ALZHEIMER'S TYPE
     Route: 048
     Dates: end: 20080222
  2. DONEPEZIL HCL [Suspect]
     Route: 048
     Dates: start: 20080223, end: 20080503
  3. YUKO-KAN-SAN (CHINESE HERBAL MEDICINE) [Suspect]
     Route: 048
     Dates: start: 20080403, end: 20080501
  4. FLOMOX [Concomitant]
     Indication: UPPER RESPIRATORY TRACT INFLAMMATION
     Route: 048
     Dates: start: 20080218, end: 20080310
  5. POLARAMINE [Concomitant]
     Indication: UPPER RESPIRATORY TRACT INFECTION
     Route: 048
     Dates: start: 20080307, end: 20080310

REACTIONS (1)
  - CEREBRAL HAEMORRHAGE [None]
